FAERS Safety Report 17662574 (Version 1)
Quarter: 2020Q2

REPORT INFORMATION
  Report Type: Spontaneous
  Country: US (occurrence: US)
  Receive Date: 20200413
  Receipt Date: 20200413
  Transmission Date: 20200713
  Serious: No
  Sender: FDA-Public Use
  Company Number: US-SHIRE-US202013113

PATIENT
  Sex: Female

DRUGS (1)
  1. ADDERALL XR [Suspect]
     Active Substance: AMPHETAMINE ASPARTATE\AMPHETAMINE SULFATE\DEXTROAMPHETAMINE SACCHARATE\DEXTROAMPHETAMINE SULFATE
     Indication: ATTENTION DEFICIT HYPERACTIVITY DISORDER
     Dosage: 20 MILLIGRAM, 2X/DAY:BID
     Route: 048

REACTIONS (6)
  - Swelling [Unknown]
  - Amnesia [Unknown]
  - Pain [Unknown]
  - Logorrhoea [Unknown]
  - Inflammation [Unknown]
  - Decreased appetite [Unknown]
